FAERS Safety Report 8807144 (Version 1)
Quarter: 2012Q4

REPORT INFORMATION
  Report Type: 
  Country: US (occurrence: US)
  Receive Date: 20120925
  Receipt Date: 20120925
  Transmission Date: 20130627
  Serious: No
  Sender: FDA-Public Use
  Company Number: US-MYLANLABS-2012S1004645

PATIENT
  Sex: Female

DRUGS (2)
  1. FUROSEMIDE TABLETS, USP [Suspect]
     Indication: CARDIAC FAILURE CONGESTIVE
     Route: 048
     Dates: start: 200810
  2. JANUVIA [Concomitant]
     Indication: DIABETES MELLITUS
     Dates: start: 200810

REACTIONS (1)
  - Pain in extremity [Not Recovered/Not Resolved]
